FAERS Safety Report 19588039 (Version 2)
Quarter: 2022Q1

REPORT INFORMATION
  Report Type: Spontaneous
  Country: US (occurrence: US)
  Receive Date: 20210721
  Receipt Date: 20220228
  Transmission Date: 20220424
  Serious: Yes (Other)
  Sender: FDA-Public Use
  Company Number: US-GILEAD-2021-0540698

PATIENT
  Sex: Female

DRUGS (75)
  1. TRUVADA [Suspect]
     Active Substance: EMTRICITABINE\TENOFOVIR DISOPROXIL FUMARATE
     Indication: HIV infection
     Dosage: UNK
     Route: 048
     Dates: start: 2007
  2. TRUVADA [Suspect]
     Active Substance: EMTRICITABINE\TENOFOVIR DISOPROXIL FUMARATE
     Dosage: UNK
     Route: 065
     Dates: start: 201402, end: 201606
  3. ODEFSEY [Concomitant]
     Active Substance: EMTRICITABINE\RILPIVIRINE HYDROCHLORIDE\TENOFOVIR ALAFENAMIDE FUMARATE
  4. INTELENCE [Concomitant]
     Active Substance: ETRAVIRINE
  5. ISENTRESS [Concomitant]
     Active Substance: RALTEGRAVIR POTASSIUM
  6. NORVIR [Concomitant]
     Active Substance: RITONAVIR
  7. PREZISTA [Concomitant]
     Active Substance: DARUNAVIR ETHANOLATE
  8. VALSARTAN [Concomitant]
     Active Substance: VALSARTAN
  9. DEMADEX [Concomitant]
     Active Substance: TORSEMIDE
  10. ALLOPURINOL [Concomitant]
     Active Substance: ALLOPURINOL
  11. ACETAMINOPHEN\HYDROCODONE [Concomitant]
     Active Substance: ACETAMINOPHEN\HYDROCODONE
  12. OXYCODONE AND ACETAMINOPHEN [Concomitant]
     Active Substance: ACETAMINOPHEN\OXYCODONE HYDROCHLORIDE
  13. AMOXICILLIN\CLAVULANIC ACID [Concomitant]
     Active Substance: AMOXICILLIN\CLAVULANIC ACID
  14. PREDNISONE [Concomitant]
     Active Substance: PREDNISONE
  15. AZITHROMYCIN [Concomitant]
     Active Substance: AZITHROMYCIN
  16. AMOXICILLIN [Concomitant]
     Active Substance: AMOXICILLIN
  17. GUAIFENESIN AC [Concomitant]
     Active Substance: CODEINE PHOSPHATE\GUAIFENESIN
  18. TRAMADOL [Concomitant]
     Active Substance: TRAMADOL
  19. MELOXICAM [Concomitant]
     Active Substance: MELOXICAM
  20. CIPROFLOXACIN [Concomitant]
     Active Substance: CIPROFLOXACIN
  21. METOPROLOL [Concomitant]
     Active Substance: METOPROLOL
  22. DYMISTA [Concomitant]
     Active Substance: AZELASTINE HYDROCHLORIDE\FLUTICASONE PROPIONATE
  23. SULFAMETHOXAZOLE\TRIMETHOPRIM [Concomitant]
     Active Substance: SULFAMETHOXAZOLE\TRIMETHOPRIM
  24. TOVIAZ [Concomitant]
     Active Substance: FESOTERODINE FUMARATE
  25. CYCLOBENZAPRINE [Concomitant]
     Active Substance: CYCLOBENZAPRINE
  26. VITAMIN D NOS [Concomitant]
     Active Substance: VITAMIN D NOS
  27. KLOR-CON [Concomitant]
     Active Substance: POTASSIUM CHLORIDE
  28. NYSTOP [Concomitant]
     Active Substance: NYSTATIN
  29. PLAVIX [Concomitant]
     Active Substance: CLOPIDOGREL BISULFATE
  30. CRESTOR [Concomitant]
     Active Substance: ROSUVASTATIN CALCIUM
  31. EMOLLIENTS [Concomitant]
     Active Substance: EMOLLIENTS
  32. DIFFERIN [Concomitant]
     Active Substance: ADAPALENE
  33. METFORMIN [Concomitant]
     Active Substance: METFORMIN HYDROCHLORIDE
  34. ACETAMINOPHEN\OXYCODONE HYDROCHLORIDE\OXYCODONE TEREPHTHALATE [Concomitant]
     Active Substance: ACETAMINOPHEN\OXYCODONE HYDROCHLORIDE\OXYCODONE TEREPHTHALATE
  35. ALPRAZOLAM [Concomitant]
     Active Substance: ALPRAZOLAM
  36. RAMIPRIL [Concomitant]
     Active Substance: RAMIPRIL
  37. MECLIZINE HYDROCHLORIDE [Concomitant]
     Active Substance: MECLIZINE HYDROCHLORIDE
  38. BENZONATATE [Concomitant]
     Active Substance: BENZONATATE
  39. LEVOTHYROXINE [Concomitant]
     Active Substance: LEVOTHYROXINE
  40. AMMONIUM LACTATE [Concomitant]
     Active Substance: AMMONIUM LACTATE
  41. FLONASE ALLERGY RELIEF [Concomitant]
     Active Substance: FLUTICASONE PROPIONATE
  42. DICLOFENAC [Concomitant]
     Active Substance: DICLOFENAC
  43. CYMBALTA [Concomitant]
     Active Substance: DULOXETINE HYDROCHLORIDE
  44. ELIQUIS [Concomitant]
     Active Substance: APIXABAN
  45. GABAPENTIN [Concomitant]
     Active Substance: GABAPENTIN
  46. LOSARTAN [Concomitant]
     Active Substance: LOSARTAN
  47. LATANOPROST [Concomitant]
     Active Substance: LATANOPROST
  48. OXYBUTYNIN [Concomitant]
     Active Substance: OXYBUTYNIN
  49. ATORVASTATIN [Concomitant]
     Active Substance: ATORVASTATIN
  50. DULOXETINE [Concomitant]
     Active Substance: DULOXETINE
  51. AMMONIUM LACTATE [Concomitant]
     Active Substance: AMMONIUM LACTATE
  52. FLUTICASONE [Concomitant]
     Active Substance: FLUTICASONE
  53. POTASSIUM CHLORIDE [Concomitant]
     Active Substance: POTASSIUM CHLORIDE
  54. TORSEMIDE [Concomitant]
     Active Substance: TORSEMIDE
  55. ESCITALOPRAM [Concomitant]
     Active Substance: ESCITALOPRAM OXALATE
  56. VASCEPA [Concomitant]
     Active Substance: ICOSAPENT ETHYL
  57. SPIRONOLACTONE [Concomitant]
     Active Substance: SPIRONOLACTONE
  58. IBANDRONATE SODIUM [Concomitant]
     Active Substance: IBANDRONATE SODIUM
  59. ALBUTEROL SULFATE [Concomitant]
     Active Substance: ALBUTEROL SULFATE
  60. ROSUVASTATIN [Concomitant]
     Active Substance: ROSUVASTATIN
  61. NITROFURANTOIN [Concomitant]
     Active Substance: NITROFURANTOIN
  62. TRIAZOLAM [Concomitant]
     Active Substance: TRIAZOLAM
  63. BUMETANIDE [Concomitant]
     Active Substance: BUMETANIDE
  64. HYDROXYZINE PAMOATE [Concomitant]
     Active Substance: HYDROXYZINE PAMOATE
  65. METOLAZONE [Concomitant]
     Active Substance: METOLAZONE
  66. SAVELLA [Concomitant]
     Active Substance: MILNACIPRAN HYDROCHLORIDE
  67. PROLIA [Concomitant]
     Active Substance: DENOSUMAB
  68. PHOSPHORUS [Concomitant]
     Active Substance: PHOSPHORUS
  69. DEEP SEA PREMIUM SALINE [Concomitant]
  70. CLOTRIMAZOLE [Concomitant]
     Active Substance: CLOTRIMAZOLE
  71. SILVER SULFADIAZINE [Concomitant]
     Active Substance: SILVER SULFADIAZINE
  72. OZEMPIC [Concomitant]
     Active Substance: SEMAGLUTIDE
  73. PROMETHAZINE [Concomitant]
     Active Substance: PROMETHAZINE HYDROCHLORIDE
  74. VENTOLIN [Concomitant]
     Active Substance: ALBUTEROL SULFATE
  75. REPATHA [Concomitant]
     Active Substance: EVOLOCUMAB

REACTIONS (7)
  - Chronic kidney disease [Not Recovered/Not Resolved]
  - Depression [Not Recovered/Not Resolved]
  - Pain [Not Recovered/Not Resolved]
  - Emotional distress [Not Recovered/Not Resolved]
  - Anxiety [Not Recovered/Not Resolved]
  - Anhedonia [Not Recovered/Not Resolved]
  - Renal impairment [Unknown]

NARRATIVE: CASE EVENT DATE: 20170101
